FAERS Safety Report 14258883 (Version 1)
Quarter: 2017Q4

REPORT INFORMATION
  Report Type: Spontaneous
  Country: US (occurrence: None)
  Receive Date: 20171207
  Receipt Date: 20171207
  Transmission Date: 20180321
  Serious: Yes (Disabling)
  Sender: FDA-Public Use
  Company Number: None

PATIENT
  Age: 32 Year
  Sex: Female
  Weight: 63.5 kg

DRUGS (9)
  1. STRATTERA [Concomitant]
     Active Substance: ATOMOXETINE HYDROCHLORIDE
  2. OMEGA-3 ACIDS [Concomitant]
     Active Substance: OMEGA-3 FATTY ACIDS
  3. PROBIOTICS [Concomitant]
     Active Substance: PROBIOTICS NOS
  4. GINGER. [Concomitant]
     Active Substance: GINGER
  5. ABILIFY [Concomitant]
     Active Substance: ARIPIPRAZOLE
  6. PREDNISONE. [Concomitant]
     Active Substance: PREDNISONE
  7. TURMERIC [Concomitant]
     Active Substance: HERBALS\TURMERIC
  8. TRAMADOL. [Concomitant]
     Active Substance: TRAMADOL
  9. SKYLA [Suspect]
     Active Substance: LEVONORGESTREL

REACTIONS (2)
  - Immobile [None]
  - Rheumatoid arthritis [None]

NARRATIVE: CASE EVENT DATE: 20170209
